FAERS Safety Report 8106772-7 (Version None)
Quarter: 2012Q1

REPORT INFORMATION
  Report Type: 
  Country: None (occurrence: None)
  Receive Date: 20120202
  Receipt Date: 20120119
  Transmission Date: 20120608
  Serious: Yes (Disabling)
  Sender: FDA-Public Use
  Company Number: AU-SANOFI-AVENTIS-2011SA081542

PATIENT
  Age: 81 Year
  Sex: Female
  Weight: 37 kg

DRUGS (5)
  1. ENOXAPARIN SODIUM [Suspect]
     Indication: HIP SURGERY
     Route: 058
     Dates: start: 20111111, end: 20111212
  2. ATACAND [Concomitant]
  3. HIPREX [Concomitant]
  4. RABEPRAZOLE SODIUM [Concomitant]
  5. THYROXIN [Concomitant]

REACTIONS (3)
  - FATIGUE [None]
  - ASTHENIA [None]
  - FAECES DISCOLOURED [None]
